FAERS Safety Report 21218081 (Version 1)
Quarter: 2022Q3

REPORT INFORMATION
  Report Type: Report from Study
  Country: DE (occurrence: DE)
  Receive Date: 20220816
  Receipt Date: 20220816
  Transmission Date: 20221026
  Serious: Yes (Hospitalization, Other)
  Sender: FDA-Public Use
  Company Number: DE-AMGEN-DEUNI2018167827

PATIENT
  Age: 69 Year
  Sex: Female
  Weight: 75 kg

DRUGS (14)
  1. PANITUMUMAB [Suspect]
     Active Substance: PANITUMUMAB
     Indication: Colorectal cancer metastatic
     Dosage: 450 MILLIGRAM
     Route: 042
     Dates: start: 20181029
  2. LEUCOVORIN [Suspect]
     Active Substance: LEUCOVORIN
     Indication: Colorectal cancer metastatic
     Dosage: 800 MILLIGRAM
     Route: 065
     Dates: start: 20181029
  3. LEUCOVORIN [Suspect]
     Active Substance: LEUCOVORIN
     Dosage: 800 MILLIGRAM
     Route: 065
     Dates: start: 20190225
  4. LEUCOVORIN [Suspect]
     Active Substance: LEUCOVORIN
     Dosage: 800 MILLIGRAM
     Route: 065
     Dates: start: 20190311
  5. FLUOROURACIL [Suspect]
     Active Substance: FLUOROURACIL
     Indication: Colorectal cancer metastatic
     Dosage: 3800 MILLIGRAM
     Route: 042
     Dates: start: 20181029
  6. FLUOROURACIL [Suspect]
     Active Substance: FLUOROURACIL
     Dosage: 3600 MILLIGRAM
     Route: 042
     Dates: start: 20181210
  7. OXALIPLATIN [Suspect]
     Active Substance: OXALIPLATIN
     Indication: Colorectal cancer metastatic
     Dosage: 150 MILLIGRAM
     Route: 065
     Dates: start: 20181029
  8. OXALIPLATIN [Suspect]
     Active Substance: OXALIPLATIN
     Dosage: 130 MILLIGRAM
     Route: 065
     Dates: start: 20181112
  9. OXALIPLATIN [Suspect]
     Active Substance: OXALIPLATIN
     Dosage: 100 MILLIGRAM
     Route: 065
     Dates: start: 20190225
  10. AMLODIPINE BESYLATE [Concomitant]
     Active Substance: AMLODIPINE BESYLATE
     Dosage: 5 MILLIGRAM, QD
     Route: 048
     Dates: end: 20201116
  11. METOPROLOL [Concomitant]
     Active Substance: METOPROLOL
     Indication: Hypertension
     Dosage: 100 MILLIGRAM, QD
     Route: 048
     Dates: end: 20201116
  12. VALSARTAN [Concomitant]
     Active Substance: VALSARTAN
     Indication: Hypertension
     Dosage: 320 MILLIGRAM, QD
     Route: 048
     Dates: end: 20201116
  13. PANTOPRAZOLE SODIUM [Concomitant]
     Active Substance: PANTOPRAZOLE SODIUM
     Dosage: 40 MILLIGRAM, QD
     Route: 048
     Dates: end: 20201116
  14. PROMETHAZINE [Concomitant]
     Active Substance: PROMETHAZINE HYDROCHLORIDE
     Dosage: 2.5 MILLILITER, QD
     Route: 048
     Dates: end: 20201116

REACTIONS (1)
  - Gastroenteritis salmonella [Recovered/Resolved]

NARRATIVE: CASE EVENT DATE: 20181117
